FAERS Safety Report 7204331-1 (Version None)
Quarter: 2010Q4

REPORT INFORMATION
  Report Type: 
  Country: None (occurrence: None)
  Receive Date: 20101230
  Receipt Date: 20101222
  Transmission Date: 20110411
  Serious: Yes (Hospitalization)
  Sender: FDA-Public Use
  Company Number: GB-TEVA-261256ISR

PATIENT
  Age: 25 Year
  Sex: Female

DRUGS (2)
  1. TRIMETHOPRIM [Suspect]
     Indication: URINARY TRACT INFECTION
     Dates: start: 20090702
  2. TRIMETHOPRIM [Suspect]
     Dates: start: 20090906

REACTIONS (7)
  - ABDOMINAL PAIN [None]
  - ADRENOCORTICAL INSUFFICIENCY ACUTE [None]
  - CONJUNCTIVITIS [None]
  - DECREASED APPETITE [None]
  - HYPOVOLAEMIC SHOCK [None]
  - PYREXIA [None]
  - VENTRICULAR FIBRILLATION [None]
